FAERS Safety Report 15154474 (Version 1)
Quarter: 2018Q3

REPORT INFORMATION
  Report Type: Spontaneous
  Country: US (occurrence: US)
  Receive Date: 20180717
  Receipt Date: 20180717
  Transmission Date: 20181010
  Serious: Yes (Death)
  Sender: FDA-Public Use
  Company Number: US-PFIZER INC-2018034782

PATIENT
  Age: 74 Year
  Sex: Male
  Weight: 126.1 kg

DRUGS (1)
  1. SOMAVERT [Suspect]
     Active Substance: PEGVISOMANT
     Indication: ACROMEGALY
     Dosage: 20 MG, 3 DAYS/WEEK
     Dates: start: 20150216

REACTIONS (2)
  - Product use issue [Unknown]
  - Myocardial infarction [Fatal]
